FAERS Safety Report 5485444-1 (Version None)
Quarter: 2007Q4

REPORT INFORMATION
  Report Type: 
  Country: None (occurrence: None)
  Receive Date: 20071011
  Receipt Date: 20070925
  Transmission Date: 20080405
  Serious: Yes (Other)
  Sender: FDA-Public Use
  Company Number: 162353ISR

PATIENT
  Age: 59 Year
  Sex: Female

DRUGS (5)
  1. CITALOPRAM HYDROBROMIDE [Suspect]
     Indication: DEPRESSION
     Dosage: 20 MG (20 MG, 1 IN 1 D); ORAL
     Route: 048
     Dates: start: 20070810, end: 20070910
  2. NIMODIPINE [Concomitant]
  3. ALPRAZOLAM [Concomitant]
  4. RANITIDINE HCL [Concomitant]
  5. CHLORTHALIDONE [Concomitant]

REACTIONS (7)
  - DEAFNESS [None]
  - DIARRHOEA [None]
  - DIZZINESS [None]
  - NAUSEA [None]
  - SOMNOLENCE [None]
  - TINNITUS [None]
  - VOMITING [None]
